FAERS Safety Report 9571077 (Version 1)
Quarter: 2013Q3

REPORT INFORMATION
  Report Type: Spontaneous
  Country: US (occurrence: None)
  Receive Date: 20130927
  Receipt Date: 20130927
  Transmission Date: 20140515
  Serious: Yes (Other)
  Sender: FDA-Public Use
  Company Number: 2013EXPUS00139

PATIENT
  Sex: Female

DRUGS (1)
  1. EXPAREL [Suspect]
     Indication: PRODUCT USED FOR UNKNOWN INDICATION
     Dosage: INFILTRATION
     Dates: start: 2013, end: 2013

REACTIONS (2)
  - Implant site extravasation [None]
  - Implant site infection [None]
